FAERS Safety Report 13260208 (Version 3)
Quarter: 2017Q2

REPORT INFORMATION
  Report Type: Spontaneous
  Country: US (occurrence: US)
  Receive Date: 20170222
  Receipt Date: 20170622
  Transmission Date: 20170830
  Serious: Yes (Other)
  Sender: FDA-Public Use
  Company Number: US-VIFOR (INTERNATIONAL) INC.-VIT-2017-00253

PATIENT
  Age: 92 Year
  Sex: Male

DRUGS (6)
  1. GLIMEPIRIDE. [Concomitant]
     Active Substance: GLIMEPIRIDE
     Indication: DIABETES MELLITUS
  2. FOLIC ACID. [Concomitant]
     Active Substance: FOLIC ACID
  3. VELTASSA [Suspect]
     Active Substance: PATIROMER
     Indication: BLOOD POTASSIUM INCREASED
     Route: 048
     Dates: start: 20161228
  4. ERGOCALCIFEROL. [Concomitant]
     Active Substance: ERGOCALCIFEROL
  5. VELTASSA [Suspect]
     Active Substance: PATIROMER
  6. PREDNISONE. [Concomitant]
     Active Substance: PREDNISONE
     Indication: CHRONIC LEUKAEMIA

REACTIONS (6)
  - Product preparation error [Unknown]
  - Product quality issue [Unknown]
  - Blood potassium increased [Recovered/Resolved]
  - Choking [Recovered/Resolved]
  - Off label use [Unknown]
  - Blood glucose decreased [Recovered/Resolved]

NARRATIVE: CASE EVENT DATE: 2017
